FAERS Safety Report 7795646-7 (Version None)
Quarter: 2011Q4

REPORT INFORMATION
  Report Type: 
  Country: None (occurrence: None)
  Receive Date: 20111004
  Receipt Date: 20110926
  Transmission Date: 20120403
  Serious: Yes (Death, Hospitalization)
  Sender: FDA-Public Use
  Company Number: DK-GLAXOSMITHKLINE-B0301303A

PATIENT
  Sex: Female

DRUGS (9)
  1. CODEINE [Concomitant]
  2. GABAPENTIN [Concomitant]
  3. MIRTAZAPINE [Suspect]
     Indication: DEPRESSION
     Dosage: 60MG TWICE PER DAY
  4. CLONAZEPAM [Concomitant]
     Dosage: .5MG PER DAY
  5. MORPHINE [Concomitant]
     Indication: PAIN
     Dosage: 30MG TWICE PER DAY
  6. CENTYL [Concomitant]
     Indication: HYPERTENSION
     Dosage: 2.5MG THREE TIMES PER DAY
  7. LAMICTAL [Suspect]
     Dosage: 150MG TWICE PER DAY
     Dates: end: 20030530
  8. CLOMIPRAMINE HCL [Suspect]
     Indication: DEPRESSION
     Dosage: 75MG TWICE PER DAY
  9. ENALAPRIL MALEATE [Concomitant]
     Indication: HYPERTENSION
     Dosage: 20MG PER DAY

REACTIONS (17)
  - LEUKOPLAKIA ORAL [None]
  - OROPHARYNGEAL PAIN [None]
  - LEUKOPENIA [None]
  - PAINFUL RESPIRATION [None]
  - CYANOSIS [None]
  - SPEECH DISORDER [None]
  - COUGH [None]
  - TONSILLITIS [None]
  - SOMNOLENCE [None]
  - DEATH [None]
  - LOCAL SWELLING [None]
  - TACHYPNOEA [None]
  - AGRANULOCYTOSIS [None]
  - DRUG INTERACTION [None]
  - NERVOUS SYSTEM DISORDER [None]
  - BACTERIAL SEPSIS [None]
  - PYREXIA [None]
